FAERS Safety Report 7276423-2 (Version None)
Quarter: 2011Q1

REPORT INFORMATION
  Report Type: 
  Country: None (occurrence: None)
  Receive Date: 20110204
  Receipt Date: 20110131
  Transmission Date: 20110831
  Serious: Yes (Other)
  Sender: FDA-Public Use
  Company Number: US-PFIZER INC-2011012745

PATIENT
  Sex: Female

DRUGS (2)
  1. LYRICA [Suspect]
     Indication: NEURALGIA
     Dosage: UNK
  2. NEURONTIN [Suspect]
     Indication: NEURALGIA

REACTIONS (9)
  - HALLUCINATION [None]
  - FEELING ABNORMAL [None]
  - FALL [None]
  - ECCHYMOSIS [None]
  - MALAISE [None]
  - EMOTIONAL DISORDER [None]
  - DRUG INEFFECTIVE [None]
  - PAIN [None]
  - ARTHRITIS [None]
